FAERS Safety Report 7244038-8 (Version None)
Quarter: 2011Q1

REPORT INFORMATION
  Report Type: 
  Country: None (occurrence: None)
  Receive Date: 20110125
  Receipt Date: 20110111
  Transmission Date: 20110831
  Serious: Yes (Hospitalization)
  Sender: FDA-Public Use
  Company Number: US-ELI_LILLY_AND_COMPANY-US201101002678

PATIENT
  Sex: Male
  Weight: 101.1 kg

DRUGS (15)
  1. CISPLATIN [Suspect]
     Indication: TRANSITIONAL CELL CARCINOMA
     Dosage: 70 MG/M2, Q28 DAYS
     Dates: start: 20101216
  2. IBUPROFEN [Concomitant]
     Dates: start: 20050101
  3. TOPROL-XL [Concomitant]
     Dates: start: 20101213
  4. MEDROL [Concomitant]
     Dates: end: 20110105
  5. CETUXIMAB [Suspect]
     Indication: TRANSITIONAL CELL CARCINOMA
     Dosage: 500 MG/M2, Q2WEEKS
     Dates: start: 20101216
  6. TYLENOL EXTRA STRENGTH [Concomitant]
     Dates: start: 20000101
  7. MULTIPLE VITAMINS [Concomitant]
     Dates: start: 20091201
  8. MAGNESIUM OXIDE [Concomitant]
     Dates: start: 20101222
  9. CLEOCIN T [Concomitant]
     Route: 061
     Dates: start: 20101230
  10. DOXYCYCLINE [Concomitant]
     Dates: start: 20101222
  11. ALPRAZOLAM [Concomitant]
     Dates: start: 20100701
  12. HEPARIN [Concomitant]
     Route: 040
     Dates: start: 20101217
  13. BENADRYL [Concomitant]
     Dates: start: 20101222
  14. GEMCITABINE HYDROCHLORIDE [Suspect]
     Indication: TRANSITIONAL CELL CARCINOMA
     Dosage: 800 MG/M2, UNK
     Dates: start: 20101223
  15. ASPIRIN [Concomitant]
     Dates: start: 20020101

REACTIONS (5)
  - NEUTROPHIL COUNT ABNORMAL [None]
  - FATIGUE [None]
  - FAILURE TO THRIVE [None]
  - HYPONATRAEMIA [None]
  - URINARY TRACT INFECTION [None]
